FAERS Safety Report 8401091-3 (Version None)
Quarter: 2012Q2

REPORT INFORMATION
  Report Type: 
  Country: None (occurrence: None)
  Receive Date: 20120601
  Receipt Date: 20120529
  Transmission Date: 20120825
  Serious: No
  Sender: FDA-Public Use
  Company Number: US-PFIZER INC-2012130323

PATIENT
  Sex: Male
  Weight: 113.38 kg

DRUGS (8)
  1. TRAMADOL [Concomitant]
     Indication: PAIN
     Dosage: 50 MG, SIX TIMES A DAY AS NEEDED
  2. VALIUM [Concomitant]
     Indication: NERVOUSNESS
     Dosage: 5 MG, THREE TIMES A DAY AS NEEDED
  3. VIAGRA [Suspect]
     Indication: ERECTILE DYSFUNCTION
     Dosage: 50 MG, UNK
     Route: 048
     Dates: start: 20030101
  4. ALBUTEROL [Concomitant]
     Indication: ASTHMA
     Dosage: UNK, TWO PUFFS DAILY AS NEEDED
  5. LUNESTA [Concomitant]
     Indication: SLEEP DISORDER
     Dosage: 3 MG, DAILY
  6. NEURONTIN [Concomitant]
     Indication: BIPOLAR I DISORDER
     Dosage: 800 MG, THREE TIMES A DAY AS NEEDED
  7. TRAZODONE [Concomitant]
     Indication: SLEEP DISORDER
     Dosage: 150MG, THREE TABLETS AT BED TIME
     Route: 048
  8. VIAGRA [Suspect]
     Dosage: 100 MG, AS NEEDED
     Route: 048

REACTIONS (3)
  - BLOOD CHOLESTEROL INCREASED [None]
  - THERAPEUTIC RESPONSE UNEXPECTED [None]
  - DRUG INEFFECTIVE [None]
